FAERS Safety Report 4317722-3 (Version None)
Quarter: 2004Q1

REPORT INFORMATION
  Report Type: 
  Country: None (occurrence: None)
  Receive Date: 20040315
  Receipt Date: 20040308
  Transmission Date: 20041129
  Serious: Yes (Hospitalization)
  Sender: FDA-Public Use
  Company Number: US-BRISTOL-MYERS SQUIBB COMPANY-12527099

PATIENT
  Age: 42 Year
  Sex: Female
  Weight: 57 kg

DRUGS (4)
  1. ZERIT [Suspect]
     Indication: HIV INFECTION
     Route: 048
     Dates: end: 20040201
  2. VIDEX [Concomitant]
  3. SUSTIVA [Concomitant]
  4. COMBIVIR [Concomitant]

REACTIONS (4)
  - ABDOMINAL DISTENSION [None]
  - ABDOMINAL PAIN [None]
  - EATING DISORDER [None]
  - WEIGHT DECREASED [None]
